FAERS Safety Report 10651926 (Version 1)
Quarter: 2014Q4

REPORT INFORMATION
  Report Type: Spontaneous
  Country: None (occurrence: None)
  Receive Date: 20141205
  Receipt Date: 20141205
  Transmission Date: 20150529
  Serious: Yes (Other)
  Sender: FDA-Public Use
  Company Number: 2014GMK008378

PATIENT
  Age: 54 Year
  Sex: Female

DRUGS (1)
  1. PRAMIPEXOLE [Suspect]
     Active Substance: PRAMIPEXOLE
     Indication: RESTLESS LEGS SYNDROME
     Route: 048
     Dates: start: 2007, end: 20131224

REACTIONS (6)
  - Dyspnoea [None]
  - Weight increased [None]
  - Off label use [None]
  - Cough [None]
  - Quality of life decreased [None]
  - Chest discomfort [None]
